FAERS Safety Report 21647088 (Version 1)
Quarter: 2022Q4

REPORT INFORMATION
  Report Type: Spontaneous
  Country: DE (occurrence: DE)
  Receive Date: 20221127
  Receipt Date: 20221127
  Transmission Date: 20230112
  Serious: Yes (Other)
  Sender: FDA-Public Use
  Company Number: DE-009507513-2211DEU007980

PATIENT
  Sex: Female

DRUGS (1)
  1. STROMECTOL [Suspect]
     Active Substance: IVERMECTIN
     Dosage: UNK
     Route: 048

REACTIONS (2)
  - Brain oedema [Unknown]
  - Coma [Unknown]
